FAERS Safety Report 20882963 (Version 1)
Quarter: 2022Q2

REPORT INFORMATION
  Report Type: Spontaneous
  Country: US (occurrence: US)
  Receive Date: 20220527
  Receipt Date: 20220527
  Transmission Date: 20220721
  Serious: Yes (Hospitalization)
  Sender: FDA-Public Use
  Company Number: US-MYLANLABS-2022M1038785

PATIENT
  Age: 63 Year
  Sex: Female

DRUGS (4)
  1. LIDOCAINE [Suspect]
     Active Substance: LIDOCAINE
     Indication: Arthralgia
     Dosage: UNK, IN THE RIGHT THUMB WAS INJECTED WITH 2 CM3 OF 1% LIDOCAINE
     Route: 065
     Dates: start: 2020
  2. LIDOCAINE [Suspect]
     Active Substance: LIDOCAINE
     Indication: Trigger finger
  3. DEXAMETHASONE [Suspect]
     Active Substance: DEXAMETHASONE
     Indication: Arthralgia
     Dosage: UNK, IN THE RIGHT THUMB WAS INJECTED WITH 1 CM3 DEXAMETHASONE INJECTION
     Route: 065
     Dates: start: 2020
  4. DEXAMETHASONE [Suspect]
     Active Substance: DEXAMETHASONE
     Indication: Trigger finger

REACTIONS (3)
  - Tendon rupture [Recovering/Resolving]
  - Drug ineffective [Unknown]
  - Off label use [Unknown]

NARRATIVE: CASE EVENT DATE: 20200101
